FAERS Safety Report 4683741-0 (Version None)
Quarter: 2005Q2

REPORT INFORMATION
  Report Type: 
  Country: None (occurrence: None)
  Receive Date: 20050602
  Receipt Date: 20050128
  Transmission Date: 20051028
  Serious: No
  Sender: FDA-Public Use
  Company Number: USA050189414

PATIENT
  Sex: Female

DRUGS (4)
  1. CYMBALTA [Suspect]
     Indication: DEPRESSION
     Dosage: 30 MG DAY
     Dates: start: 20050128
  2. ABILIFY [Concomitant]
  3. SEROQU (QUETIAPINE FUMARATE) [Concomitant]
  4. EFFEXOR XR [Concomitant]

REACTIONS (3)
  - EMOTIONAL DISTRESS [None]
  - MENTAL IMPAIRMENT [None]
  - TREMOR [None]
